FAERS Safety Report 9697743 (Version 2)
Quarter: 2013Q4

REPORT INFORMATION
  Report Type: Spontaneous
  Country: FR (occurrence: None)
  Receive Date: 20131106
  Receipt Date: 20131120
  Transmission Date: 20140711
  Serious: Yes (Other)
  Sender: FDA-Public Use
  Company Number: 2013038696

PATIENT
  Age: 10 Year
  Sex: Male

DRUGS (1)
  1. HIZENTRA (IMMUNOGLOBULIN HUMAN NORMAL) [Suspect]
     Indication: SELECTIVE IGG SUBCLASS DEFICIENCY
     Dates: start: 20120411

REACTIONS (9)
  - Injection site reaction [None]
  - Pruritus [None]
  - Erythema [None]
  - Injection site pain [None]
  - Crying [None]
  - Swelling [None]
  - Injection site induration [None]
  - Abdominal distension [None]
  - Pain [None]
